FAERS Safety Report 6439245-8 (Version None)
Quarter: 2009Q4

REPORT INFORMATION
  Report Type: 
  Country: None (occurrence: None)
  Receive Date: 20091113
  Receipt Date: 20091103
  Transmission Date: 20100525
  Serious: Yes (Other)
  Sender: FDA-Public Use
  Company Number: NL-NOVOPROD-291928

PATIENT
  Age: 52 Year
  Sex: Female
  Weight: 93 kg

DRUGS (1)
  1. NOVORAPID [Suspect]
     Indication: TYPE 1 DIABETES MELLITUS
     Dosage: UNK
     Route: 058
     Dates: start: 20090420, end: 20091016

REACTIONS (2)
  - INJECTION SITE ABSCESS [None]
  - PYREXIA [None]
